FAERS Safety Report 23677457 (Version 1)
Quarter: 2024Q1

REPORT INFORMATION
  Report Type: Spontaneous
  Country: US (occurrence: US)
  Receive Date: 20240327
  Receipt Date: 20240327
  Transmission Date: 20240410
  Serious: No
  Sender: FDA-Public Use
  Company Number: US-PERRIGO-23US010880

PATIENT
  Age: 63 Year
  Weight: 56.689 kg

DRUGS (1)
  1. FEXOFENADINE HYDROCHLORIDE [Suspect]
     Active Substance: FEXOFENADINE HYDROCHLORIDE
     Indication: Hypersensitivity
     Dosage: 180 MG, QD
     Route: 048
     Dates: start: 20230908, end: 20230909

REACTIONS (8)
  - Cold sweat [Recovered/Resolved]
  - Paraesthesia [Recovered/Resolved]
  - Tremor [Recovered/Resolved]
  - Nausea [Recovered/Resolved]
  - Diarrhoea [Recovered/Resolved]
  - Abdominal pain upper [Recovered/Resolved]
  - Dizziness [Recovered/Resolved]
  - Allergic reaction to excipient [Recovered/Resolved]

NARRATIVE: CASE EVENT DATE: 20230909
